FAERS Safety Report 8299675-9 (Version None)
Quarter: 2012Q2

REPORT INFORMATION
  Report Type: 
  Country: None (occurrence: None)
  Receive Date: 20120419
  Receipt Date: 20120412
  Transmission Date: 20120825
  Serious: Yes (Hospitalization)
  Sender: FDA-Public Use
  Company Number: US-ELI_LILLY_AND_COMPANY-US201202005197

PATIENT
  Sex: Female

DRUGS (11)
  1. FORTEO [Suspect]
     Dosage: 20 UG, QD
  2. PROBIOTICS [Concomitant]
  3. ASCORBIC ACID [Concomitant]
  4. VALIUM [Concomitant]
     Indication: SURGERY
  5. TYLENOL                                 /SCH/ [Concomitant]
  6. FORTEO [Suspect]
     Indication: OSTEOPOROSIS
     Dosage: 20 UG, QD
     Dates: start: 20120208
  7. FORTEO [Suspect]
     Dosage: 20 UG, QD
  8. CALCIUM CARBONATE [Concomitant]
  9. VITAMIN B COMPLEX CAP [Concomitant]
  10. STOOL SOFTENER [Concomitant]
  11. VITAMIN D [Concomitant]

REACTIONS (8)
  - PAIN IN EXTREMITY [None]
  - SURGERY [None]
  - DIARRHOEA [None]
  - DRUG DOSE OMISSION [None]
  - FLATULENCE [None]
  - INJECTION SITE PAIN [None]
  - INJECTION SITE HAEMORRHAGE [None]
  - ABDOMINAL DISCOMFORT [None]
